FAERS Safety Report 6594903-X (Version None)
Quarter: 2010Q1

REPORT INFORMATION
  Report Type: 
  Country: None (occurrence: None)
  Receive Date: 20100222
  Receipt Date: 20100216
  Transmission Date: 20100710
  Serious: Yes (Other)
  Sender: FDA-Public Use
  Company Number: US-SANOFI-AVENTIS-2010SA006392

PATIENT
  Age: 96 Year
  Sex: Male

DRUGS (4)
  1. PLAVIX [Suspect]
     Indication: STENT PLACEMENT
     Route: 048
     Dates: start: 20070101, end: 20090101
  2. PLAVIX [Suspect]
     Indication: PROPHYLAXIS
     Route: 048
     Dates: start: 20070101, end: 20090101
  3. PLAVIX [Suspect]
     Dosage: TAKES ONE HALF TABLET PER DAY
     Route: 048
     Dates: start: 20090101
  4. PLAVIX [Suspect]
     Dosage: TAKES ONE HALF TABLET PER DAY
     Route: 048
     Dates: start: 20090101

REACTIONS (6)
  - BURNING SENSATION [None]
  - DIZZINESS [None]
  - GALLBLADDER DISORDER [None]
  - PRURITUS [None]
  - RASH [None]
  - WRONG TECHNIQUE IN DRUG USAGE PROCESS [None]
